FAERS Safety Report 12855293 (Version 2)
Quarter: 2016Q4

REPORT INFORMATION
  Report Type: Spontaneous
  Country: BD (occurrence: BD)
  Receive Date: 20161017
  Receipt Date: 20161108
  Transmission Date: 20170207
  Serious: Yes (Death)
  Sender: FDA-Public Use
  Company Number: PHHY2016BD142197

PATIENT
  Age: 58 Year
  Sex: Male

DRUGS (1)
  1. ZOMETA [Suspect]
     Active Substance: ZOLEDRONIC ACID
     Indication: METASTASES TO BONE
     Route: 065

REACTIONS (6)
  - Confusional state [Unknown]
  - Influenza like illness [Fatal]
  - Gastric cancer [Fatal]
  - Metastases to bone [Fatal]
  - Incontinence [Unknown]
  - Foaming at mouth [Unknown]
